FAERS Safety Report 5932261-1 (Version None)
Quarter: 2008Q4

REPORT INFORMATION
  Report Type: 
  Country: None (occurrence: None)
  Receive Date: 20081028
  Receipt Date: 20081016
  Transmission Date: 20090506
  Serious: Yes (Other)
  Sender: FDA-Public Use
  Company Number: US-ROCHE-552218

PATIENT
  Sex: Male
  Weight: 73.5 kg

DRUGS (9)
  1. ACCUTANE [Suspect]
     Dosage: ACCUTANE DISPENSED ON 8/19/02, 10/15/02, 11/12/02, 12/18/02, 4/2/03,5/1/03,6/27/03 AND 8/4/03.
     Route: 065
     Dates: start: 20010209, end: 20010901
  2. ACCUTANE [Suspect]
     Route: 065
     Dates: start: 20020718, end: 20021201
  3. ACCUTANE [Suspect]
     Dosage: AUGUST 2003 40 MG QD.
     Route: 065
     Dates: start: 20030402, end: 20030901
  4. ACCUTANE [Suspect]
     Route: 065
     Dates: start: 20041001, end: 20050401
  5. AMNESTEEM [Suspect]
     Indication: ACNE
     Dosage: DISPENSED ON 1/22/03 AND 2/26/03
     Route: 065
     Dates: start: 20030122, end: 20030328
  6. SOTRET [Suspect]
     Indication: ACNE
     Dosage: DISPENSED ON 10/6/04, 11/10/04, 12/9/04, 1/17/05, 2/24/05, 4/13/05
     Route: 065
     Dates: start: 20041006, end: 20050513
  7. ENTOCORT EC [Concomitant]
  8. DYAZIDE [Concomitant]
  9. AZELEX [Concomitant]
     Indication: ACNE

REACTIONS (19)
  - APHTHOUS STOMATITIS [None]
  - ATTENTION DEFICIT/HYPERACTIVITY DISORDER [None]
  - BRONCHITIS [None]
  - CHAPPED LIPS [None]
  - CHEILITIS [None]
  - CROHN'S DISEASE [None]
  - DEPRESSION [None]
  - DYSURIA [None]
  - HYPERTENSION [None]
  - INFLAMMATORY BOWEL DISEASE [None]
  - INGROWN HAIR [None]
  - MITRAL VALVE PROLAPSE [None]
  - RASH [None]
  - SACROILIITIS [None]
  - SKIN IRRITATION [None]
  - STRESS [None]
  - TINEA PEDIS [None]
  - TRICUSPID VALVE INCOMPETENCE [None]
  - XEROSIS [None]
